FAERS Safety Report 25723921 (Version 2)
Quarter: 2025Q3

REPORT INFORMATION
  Report Type: Spontaneous
  Country: US (occurrence: US)
  Receive Date: 20250825
  Receipt Date: 20250912
  Transmission Date: 20251020
  Serious: No
  Sender: ROCHE
  Company Number: US-ROCHE-10000370594

PATIENT
  Sex: Female
  Weight: 68.03 kg

DRUGS (4)
  1. OCREVUS [Suspect]
     Active Substance: OCRELIZUMAB
     Indication: Relapsing-remitting multiple sclerosis
     Route: 042
     Dates: start: 202409
  2. VITAMIN D [Concomitant]
     Active Substance: VITAMIN D NOS
  3. NM-6603 [Concomitant]
     Active Substance: NM-6603
  4. MAGNESIUM [Concomitant]
     Active Substance: MAGNESIUM

REACTIONS (3)
  - Pruritus [Unknown]
  - Urticaria [Unknown]
  - Paraesthesia [Unknown]
